FAERS Safety Report 7047837-0 (Version None)
Quarter: 2010Q4

REPORT INFORMATION
  Report Type: 
  Country: None (occurrence: None)
  Receive Date: 20101015
  Receipt Date: 20101011
  Transmission Date: 20110411
  Serious: Yes (Hospitalization)
  Sender: FDA-Public Use
  Company Number: IT-ROXANE LABORATORIES, INC.-2010-RO-01342RO

PATIENT
  Age: 14 Year
  Sex: Male
  Weight: 33.9 kg

DRUGS (5)
  1. CALCITRIOL [Suspect]
     Indication: HYPOPARATHYROIDISM
     Dosage: 0.5 MCG
  2. CALCIUM CARBONATE [Suspect]
     Indication: HYPOPARATHYROIDISM
     Route: 048
  3. LEVOTHYROXINE SODIUM [Suspect]
     Indication: PRIMARY HYPOTHYROIDISM
  4. DESFERRIOXAMINE MESYLATE [Suspect]
     Indication: IRON OVERLOAD
  5. DESFERRIOXAMINE MESYLATE [Suspect]
     Indication: CHELATION THERAPY

REACTIONS (2)
  - HYPERCALCAEMIA [None]
  - HYPERVITAMINOSIS D [None]
